FAERS Safety Report 4652582-2 (Version None)
Quarter: 2005Q2

REPORT INFORMATION
  Report Type: 
  Country: None (occurrence: None)
  Receive Date: 20050504
  Receipt Date: 20050428
  Transmission Date: 20051028
  Serious: Yes (Other)
  Sender: FDA-Public Use
  Company Number: DE-JNJFOC-20050305715

PATIENT
  Sex: Female
  Weight: 71 kg

DRUGS (4)
  1. DURAGESIC-100 [Suspect]
     Indication: PAIN
     Route: 062
  2. NOVAMIN [Concomitant]
     Indication: PAIN
     Route: 049
  3. LISI [Concomitant]
     Route: 065
  4. NOCTAMID [Concomitant]
     Indication: SLEEP DISORDER
     Route: 065

REACTIONS (3)
  - FACE OEDEMA [None]
  - FUNGAL SKIN INFECTION [None]
  - PRURITUS [None]
